FAERS Safety Report 11649193 (Version 5)
Quarter: 2017Q1

REPORT INFORMATION
  Report Type: Spontaneous
  Country: DE (occurrence: DE)
  Receive Date: 20151021
  Receipt Date: 20170202
  Transmission Date: 20170428
  Serious: Yes (Other)
  Sender: FDA-Public Use
  Company Number: DE-PFIZER INC-2015348602

PATIENT
  Age: 70 Year
  Sex: Female
  Weight: 57.5 kg

DRUGS (2)
  1. AROMASIN [Suspect]
     Active Substance: EXEMESTANE
     Indication: BREAST CANCER
     Dosage: 25 MG, UNK
     Dates: start: 201303
  2. SYMBICOCT [Concomitant]
     Dosage: 320 (1-2X PER DAY)

REACTIONS (7)
  - Rheumatic disorder [Unknown]
  - Muscle strain [Unknown]
  - Yersinia bacteraemia [Recovered/Resolved]
  - Arthropathy [Unknown]
  - Hot flush [Recovering/Resolving]
  - Hyperaesthesia [Unknown]
  - Insomnia [Unknown]
